FAERS Safety Report 5404030-2 (Version None)
Quarter: 2007Q3

REPORT INFORMATION
  Report Type: 
  Country: None (occurrence: None)
  Receive Date: 20070730
  Receipt Date: 20070713
  Transmission Date: 20080115
  Serious: Yes (Death)
  Sender: FDA-Public Use
  Company Number: 2007JP001286

PATIENT
  Age: 53 Year
  Sex: Male
  Weight: 65 kg

DRUGS (9)
  1. TACROLIMUS [Suspect]
     Indication: RHEUMATOID ARTHRITIS
     Dosage: 1 MG, UID/QD, ORAL
     Route: 048
     Dates: start: 20070205, end: 20070326
  2. PREDNISOLONE [Concomitant]
  3. AZULFIDINE EN-TABS [Concomitant]
  4. TICLOPIDINE HCL [Concomitant]
  5. CALTAN [Concomitant]
  6. LANSOPRAZOLE [Concomitant]
  7. ADALAT [Concomitant]
  8. SEVELAMER HYDROCHLORIDE (SEVELAMER HYDROCHLORIDE) [Concomitant]
  9. BARACLUDE [Concomitant]

REACTIONS (1)
  - SUDDEN DEATH [None]
